FAERS Safety Report 10183951 (Version 2)
Quarter: 2014Q2

REPORT INFORMATION
  Report Type: Spontaneous
  Country: US (occurrence: US)
  Receive Date: 20140520
  Receipt Date: 20140617
  Transmission Date: 20141212
  Serious: No
  Sender: FDA-Public Use
  Company Number: US-GLAXOSMITHKLINE-A1073148A

PATIENT
  Age: 17 Year
  Sex: Female
  Weight: 80 kg

DRUGS (6)
  1. LAMICTAL [Suspect]
     Indication: BIPOLAR DISORDER
     Dosage: 100MG PER DAY
     Route: 048
  2. ORTHO CYCLEN [Suspect]
     Indication: MENSTRUATION IRREGULAR
     Route: 048
     Dates: start: 20140504, end: 20140512
  3. CITALOPRAM [Concomitant]
  4. VITAMIN D [Concomitant]
  5. OMEGA-3 [Concomitant]
  6. CLARITIN PRN [Concomitant]

REACTIONS (3)
  - Mental disorder [Recovered/Resolved]
  - Insomnia [Recovered/Resolved]
  - Anxiety [Recovered/Resolved]
